FAERS Safety Report 25789675 (Version 1)
Quarter: 2025Q3

REPORT INFORMATION
  Report Type: Report from Study
  Country: US (occurrence: US)
  Receive Date: 20250911
  Receipt Date: 20250911
  Transmission Date: 20251020
  Serious: Yes (Hospitalization, Other)
  Sender: ABBVIE
  Company Number: US-ABBVIE-6451326

PATIENT
  Sex: Male

DRUGS (3)
  1. RINVOQ [Suspect]
     Active Substance: UPADACITINIB
     Indication: Rheumatoid arthritis
     Route: 048
     Dates: start: 20240404
  2. HYDROXYCHLOROQUINE [Concomitant]
     Active Substance: HYDROXYCHLOROQUINE
     Indication: Product used for unknown indication
  3. ASPIRIN [Concomitant]
     Active Substance: ASPIRIN
     Indication: Product used for unknown indication

REACTIONS (8)
  - Sepsis [Unknown]
  - Rheumatoid arthritis [Not Recovered/Not Resolved]
  - Nephrolithiasis [Recovered/Resolved]
  - Off label use [Unknown]
  - Antiphospholipid syndrome [Unknown]
  - Sjogren^s syndrome [Unknown]
  - Connective tissue disorder [Unknown]
  - Therapeutic product effect incomplete [Unknown]
